FAERS Safety Report 9525046 (Version 2)
Quarter: 2013Q3

REPORT INFORMATION
  Report Type: Report from Study
  Country: DK (occurrence: DK)
  Receive Date: 20130916
  Receipt Date: 20130926
  Transmission Date: 20140515
  Serious: Yes (Hospitalization)
  Sender: FDA-Public Use
  Company Number: DK-MYLANLABS-2013S1019756

PATIENT
  Age: 57 Year
  Sex: Female

DRUGS (2)
  1. ALENDRONATE [Suspect]
     Indication: PRODUCT USED FOR UNKNOWN INDICATION
  2. ALISKIREN [Concomitant]
     Indication: CARDIOVASCULAR DISORDER
     Dates: start: 20081216, end: 201004

REACTIONS (2)
  - Azotaemia [Recovering/Resolving]
  - Blood urine present [Recovering/Resolving]
